FAERS Safety Report 5908830-1 (Version None)
Quarter: 2008Q3

REPORT INFORMATION
  Report Type: 
  Country: None (occurrence: None)
  Receive Date: 20080929
  Receipt Date: 20080923
  Transmission Date: 20090109
  Serious: Yes (Hospitalization)
  Sender: FDA-Public Use
  Company Number: WWISSUE-219

PATIENT
  Sex: Female

DRUGS (3)
  1. LITHIUM CARBONATE [Suspect]
     Dates: start: 20070901, end: 20080901
  2. SYNTHOID [Concomitant]
  3. UN-NAMED MEDICATION FOR INCONTINENCE (STARTED RECENTLY) [Concomitant]

REACTIONS (3)
  - INCONTINENCE [None]
  - MOUTH BREATHING [None]
  - OEDEMA PERIPHERAL [None]
